FAERS Safety Report 17873793 (Version 1)
Quarter: 2020Q2

REPORT INFORMATION
  Report Type: Spontaneous
  Country: CR (occurrence: CR)
  Receive Date: 20200609
  Receipt Date: 20200609
  Transmission Date: 20200714
  Serious: Yes (Other)
  Sender: FDA-Public Use
  Company Number: CR-PFIZER INC-2020217955

PATIENT

DRUGS (1)
  1. PRECEDEX [Suspect]
     Active Substance: DEXMEDETOMIDINE HYDROCHLORIDE
     Indication: COVID-19
     Dosage: UNK

REACTIONS (3)
  - Product use in unapproved indication [Unknown]
  - Haemodynamic instability [Unknown]
  - Off label use [Unknown]
